FAERS Safety Report 6063760-2 (Version None)
Quarter: 2009Q1

REPORT INFORMATION
  Report Type: 
  Country: None (occurrence: None)
  Receive Date: 20090130
  Receipt Date: 20090116
  Transmission Date: 20090719
  Serious: Yes (Death)
  Sender: FDA-Public Use
  Company Number: 2009S1000051

PATIENT
  Age: 45 Year
  Sex: Female

DRUGS (2)
  1. METHADONE HCL [Suspect]
     Dosage: PO
     Route: 048
     Dates: end: 20070101
  2. TRICYCLIC ANTIDEPRESSANT [Suspect]
     Dosage: PO
     Route: 048
     Dates: end: 20070101

REACTIONS (3)
  - CARDIAC ARREST [None]
  - COMPLETED SUICIDE [None]
  - RESPIRATORY ARREST [None]
